FAERS Safety Report 8124093-3 (Version None)
Quarter: 2012Q1

REPORT INFORMATION
  Report Type: 
  Country: None (occurrence: None)
  Receive Date: 20120209
  Receipt Date: 20120207
  Transmission Date: 20120608
  Serious: No
  Sender: FDA-Public Use
  Company Number: US-PFIZER INC-2011212094

PATIENT
  Sex: Female

DRUGS (1)
  1. SKELAXIN [Suspect]
     Indication: MYALGIA
     Dosage: 800 MG, 2 OR 3 TIMES/DAY
     Dates: start: 20060101

REACTIONS (1)
  - NAUSEA [None]
